FAERS Safety Report 5322840-7 (Version None)
Quarter: 2007Q2

REPORT INFORMATION
  Report Type: 
  Country: None (occurrence: None)
  Receive Date: 20070511
  Receipt Date: 20070502
  Transmission Date: 20071010
  Serious: Yes (Other)
  Sender: FDA-Public Use
  Company Number: US-PFIZER INC-2007035493

PATIENT
  Sex: Female

DRUGS (2)
  1. NEURONTIN [Suspect]
     Indication: ABDOMINAL PAIN UPPER
  2. NEURONTIN [Suspect]
     Indication: MUSCLE SPASMS

REACTIONS (7)
  - AMNESIA [None]
  - CARDIAC DISORDER [None]
  - DYSPEPSIA [None]
  - FATIGUE [None]
  - GASTRIC DISORDER [None]
  - STRESS [None]
  - SUICIDE ATTEMPT [None]
